FAERS Safety Report 4909053-5 (Version None)
Quarter: 2006Q1

REPORT INFORMATION
  Report Type: 
  Country: None (occurrence: None)
  Receive Date: 20060209
  Receipt Date: 20060209
  Transmission Date: 20060701
  Serious: Yes (Death)
  Sender: FDA-Public Use
  Company Number: None

PATIENT
  Age: 15 Year
  Sex: Female

DRUGS (3)
  1. LAMOTRIGINE [Suspect]
     Indication: CONVULSION
     Dosage: 150 MG PO
     Route: 048
     Dates: start: 20051001, end: 20051028
  2. TYLENOL [Concomitant]
  3. MOTRIN [Concomitant]

REACTIONS (4)
  - BRAIN OEDEMA [None]
  - ENCEPHALOPATHY [None]
  - HEPATIC FAILURE [None]
  - RASH [None]
